FAERS Safety Report 16114885 (Version 1)
Quarter: 2019Q1

REPORT INFORMATION
  Report Type: Spontaneous
  Country: BE (occurrence: BE)
  Receive Date: 20190325
  Receipt Date: 20190325
  Transmission Date: 20190418
  Serious: Yes (Other)
  Sender: FDA-Public Use
  Company Number: BE-PFIZER INC-2019123524

PATIENT
  Age: 55 Year
  Sex: Female
  Weight: 73 kg

DRUGS (3)
  1. PACLITAXEL. [Suspect]
     Active Substance: PACLITAXEL
     Indication: TRIPLE NEGATIVE BREAST CANCER
     Dosage: UNK
     Dates: start: 20181122, end: 20190207
  2. NOBITEN [NEBIVOLOL] [Concomitant]
     Dosage: 2.5 MG, 1X/DAY
  3. BELSAR [OLMESARTAN MEDOXOMIL] [Concomitant]
     Active Substance: OLMESARTAN MEDOXOMIL
     Dosage: STRENGTH: 20

REACTIONS (6)
  - Respiratory distress [Unknown]
  - Alopecia [Unknown]
  - Rhinitis [Unknown]
  - Pain in extremity [Unknown]
  - Onycholysis [Unknown]
  - Gastritis [Unknown]
